FAERS Safety Report 15580742 (Version 1)
Quarter: 2018Q4

REPORT INFORMATION
  Report Type: Spontaneous
  Country: US (occurrence: US)
  Receive Date: 20181104
  Receipt Date: 20181104
  Transmission Date: 20190205
  Serious: No
  Sender: FDA-Public Use
  Company Number: None

PATIENT
  Age: 36 Year
  Sex: Female
  Weight: 121.5 kg

DRUGS (1)
  1. COLD-EEZE LOZENGES ZINC GLUCONATE GLYCINE, NATURAL FLAVOR CHERRY [Suspect]
     Active Substance: ZINC GLUCONATE
     Indication: NASOPHARYNGITIS
     Dosage: ?          QUANTITY:1 LOZENGE;OTHER FREQUENCY:2-4 HOURS;?
     Route: 048
     Dates: start: 20181102, end: 20181103

REACTIONS (1)
  - Ageusia [None]

NARRATIVE: CASE EVENT DATE: 20181102
